FAERS Safety Report 25677812 (Version 2)
Quarter: 2025Q4

REPORT INFORMATION
  Report Type: Spontaneous
  Country: US (occurrence: US)
  Receive Date: 20250813
  Receipt Date: 20251016
  Transmission Date: 20260118
  Serious: No
  Sender: INCYTE
  Company Number: US-EVENT-003832

PATIENT
  Age: 79 Year

DRUGS (2)
  1. OPZELURA [Suspect]
     Active Substance: RUXOLITINIB PHOSPHATE
     Indication: Dermatitis atopic
     Dosage: UNK
  2. CERAVE DEVELOPED WITH DERMATOLOGISTS ECZEMA RELIEF CREAMY [Concomitant]
     Active Substance: OATMEAL
     Indication: Eczema
     Dosage: UNK
     Route: 065

REACTIONS (2)
  - Product availability issue [Not Recovered/Not Resolved]
  - Dermatitis atopic [Not Recovered/Not Resolved]
